FAERS Safety Report 17979017 (Version 1)
Quarter: 2020Q3

REPORT INFORMATION
  Report Type: Report from Study
  Country: IT (occurrence: IT)
  Receive Date: 20200703
  Receipt Date: 20200703
  Transmission Date: 20201103
  Serious: Yes (Hospitalization)
  Sender: FDA-Public Use
  Company Number: IT-TEVA-2020-IT-1794342

PATIENT
  Age: 18 Year
  Sex: Male

DRUGS (2)
  1. OLANZAPINA TEVA [Concomitant]
     Active Substance: OLANZAPINE
     Route: 048
  2. FLUOXETINE HYDROCHLORIDE. [Suspect]
     Active Substance: FLUOXETINE HYDROCHLORIDE
     Dosage: 2 DF
     Route: 048
     Dates: start: 20190905, end: 20191118

REACTIONS (2)
  - Behaviour disorder [Recovered/Resolved]
  - Psychomotor hyperactivity [Recovered/Resolved]

NARRATIVE: CASE EVENT DATE: 20191202
